FAERS Safety Report 8025658 (Version 3)
Quarter: 2015Q2

REPORT INFORMATION
  Report Type: Spontaneous
  Country: US (occurrence: US)
  Receive Date: 20110707
  Receipt Date: 20150622
  Transmission Date: 20150821
  Serious: Yes (Hospitalization, Other)
  Sender: FDA-Public Use
  Company Number: US-MPIJNJ-2011-02780

PATIENT
  Age: 53 Year
  Sex: Male

DRUGS (1)
  1. VELCADE [Suspect]
     Active Substance: BORTEZOMIB
     Indication: PLASMA CELL MYELOMA
     Dosage: 1.3 MG/M2, UNK
     Dates: start: 20110418, end: 20110428

REACTIONS (1)
  - Erosive duodenitis [Recovering/Resolving]

NARRATIVE: CASE EVENT DATE: 20110502
